FAERS Safety Report 7372067-2 (Version None)
Quarter: 2011Q1

REPORT INFORMATION
  Report Type: 
  Country: None (occurrence: None)
  Receive Date: 20110324
  Receipt Date: 20110225
  Transmission Date: 20110831
  Serious: No
  Sender: FDA-Public Use
  Company Number: US-B.I. PHARMACEUTICALS,INC./RIDGEFIELD-2011-BP-06869BP

PATIENT
  Sex: Male

DRUGS (13)
  1. METOPROLOL [Concomitant]
     Indication: ATRIAL FIBRILLATION
     Route: 048
  2. JANUVIA [Concomitant]
     Indication: DIABETES MELLITUS
     Dosage: 100 MG
     Route: 048
  3. DOXAZOSIN [Concomitant]
     Indication: HYPERTENSION
     Dosage: 2 MG
     Route: 048
  4. FUROSEMIDE [Concomitant]
     Indication: CARDIAC FAILURE CONGESTIVE
     Dosage: 40 MG
     Route: 048
  5. ALLOPURINOL [Concomitant]
     Indication: GOUT
     Dosage: 300 MG
     Route: 048
  6. BIOTIN [Concomitant]
     Indication: ALOPECIA
     Route: 048
  7. PRADAXA [Suspect]
     Indication: ATRIAL FIBRILLATION
     Dosage: 300 MG
     Route: 048
     Dates: start: 20110217
  8. KLOR-CON [Concomitant]
     Indication: ELECTROLYTE SUBSTITUTION THERAPY
     Dosage: 40 MEQ
     Route: 048
  9. COLCHICINE [Concomitant]
     Indication: GOUT
     Dosage: 0.6 MG
     Route: 048
  10. INDOMETHACIN [Concomitant]
     Indication: GOUT
     Dosage: 100 MG
     Route: 048
  11. ASPIRIN [Concomitant]
     Indication: PROPHYLAXIS
     Dosage: 81 MG
     Route: 048
  12. METFORMIN HCL [Concomitant]
     Indication: DIABETES MELLITUS
     Dosage: 2000 MG
     Route: 048
  13. SIMVASTATIN [Concomitant]
     Indication: BLOOD CHOLESTEROL INCREASED
     Dosage: 20 MG
     Route: 048

REACTIONS (4)
  - DIZZINESS [None]
  - ABDOMINAL PAIN UPPER [None]
  - DIARRHOEA [None]
  - SKIN IRRITATION [None]
